FAERS Safety Report 19519281 (Version 1)
Quarter: 2021Q3

REPORT INFORMATION
  Report Type: Spontaneous
  Country: US (occurrence: US)
  Receive Date: 20210712
  Receipt Date: 20210712
  Transmission Date: 20211014
  Serious: No
  Sender: FDA-Public Use
  Company Number: None

PATIENT
  Age: 84 Year

DRUGS (2)
  1. NAPROXEN (NAPROXEN 500MG TAB) [Suspect]
     Active Substance: NAPROXEN
     Indication: PAIN
     Route: 048
     Dates: start: 20210214, end: 20210222
  2. VALACYCLOVIR (VALACYCLOVIR HCL 1GM TAB) [Suspect]
     Active Substance: VALACYCLOVIR HYDROCHLORIDE
     Indication: HERPES ZOSTER
     Route: 048
     Dates: start: 20210214, end: 20210222

REACTIONS (3)
  - Rash [None]
  - Swelling [None]
  - Pemphigoid [None]

NARRATIVE: CASE EVENT DATE: 20210221
